FAERS Safety Report 17148333 (Version 3)
Quarter: 2020Q1

REPORT INFORMATION
  Report Type: Report from Study
  Country: US (occurrence: US)
  Receive Date: 20191212
  Receipt Date: 20200323
  Transmission Date: 20200409
  Serious: No
  Sender: FDA-Public Use
  Company Number: NVSC2019US022599

PATIENT
  Age: 61 Year
  Sex: Female
  Weight: 74.39 kg

DRUGS (2)
  1. MAYZENT [Suspect]
     Active Substance: SIPONIMOD
     Indication: PRODUCT USED FOR UNKNOWN INDICATION
     Dosage: 2 MG, QD
     Route: 048
     Dates: start: 20190823
  2. MAYZENT [Suspect]
     Active Substance: SIPONIMOD
     Dosage: 2 MG, QD
     Route: 048
     Dates: start: 20190923

REACTIONS (8)
  - Pyrexia [Unknown]
  - Neck pain [Unknown]
  - Malaise [Unknown]
  - Alopecia [Unknown]
  - Headache [Unknown]
  - Product physical issue [Unknown]
  - Cough [Unknown]
  - Ear pain [Unknown]

NARRATIVE: CASE EVENT DATE: 20191017
